FAERS Safety Report 8885138 (Version 5)
Quarter: 2013Q4

REPORT INFORMATION
  Report Type: Spontaneous
  Country: US (occurrence: US)
  Receive Date: 20121102
  Receipt Date: 20131113
  Transmission Date: 20140711
  Serious: Yes (Hospitalization, Disabling, Other)
  Sender: FDA-Public Use
  Company Number: US-009507513-1210USA010370

PATIENT
  Sex: Male
  Weight: 56.69 kg

DRUGS (6)
  1. FOSAMAX [Suspect]
     Indication: OSTEOPENIA
     Dosage: 70 MG, QW
     Route: 048
     Dates: start: 200105, end: 200808
  2. ALENDRONATE SODIUM [Suspect]
     Indication: OSTEOPENIA
     Dosage: 70 MG, UNK
     Route: 048
     Dates: start: 200809, end: 201010
  3. ACTONEL [Concomitant]
     Indication: OSTEOPENIA
     Dosage: 150 MG, UNK
     Dates: start: 200907, end: 201002
  4. VITAMINS (UNSPECIFIED) [Concomitant]
     Dosage: UNK, QD
     Dates: start: 1990
  5. CALCIUM (UNSPECIFIED) [Concomitant]
     Dosage: 1200 MG, QD
     Dates: start: 1990
  6. VITAMIN D (UNSPECIFIED) [Concomitant]
     Dosage: UNK
     Dates: start: 1990

REACTIONS (36)
  - Open reduction of fracture [Unknown]
  - Femur fracture [Not Recovered/Not Resolved]
  - Skin cancer [Unknown]
  - Stent placement [Unknown]
  - Femur fracture [Not Recovered/Not Resolved]
  - Osteoporosis [Not Recovered/Not Resolved]
  - Stress fracture [Not Recovered/Not Resolved]
  - Low turnover osteopathy [Not Recovered/Not Resolved]
  - Bone metabolism disorder [Unknown]
  - Insomnia [Unknown]
  - Oral infection [Unknown]
  - Oral infection [Unknown]
  - Pain [Unknown]
  - Blood cholesterol increased [Unknown]
  - Depression [Unknown]
  - Hypertension [Not Recovered/Not Resolved]
  - Infection [Unknown]
  - Inflammation [Unknown]
  - Angiopathy [Unknown]
  - Vascular operation [Unknown]
  - Sciatica [Unknown]
  - Intervertebral disc protrusion [Unknown]
  - Vertebroplasty [Unknown]
  - Bone cyst [Unknown]
  - Osteoarthritis [Unknown]
  - Resting tremor [Unknown]
  - Anxiety [Unknown]
  - Lumbar spinal stenosis [Unknown]
  - Facet joint syndrome [Unknown]
  - Gastrooesophageal reflux disease [Unknown]
  - Diarrhoea [Unknown]
  - Rib fracture [Recovering/Resolving]
  - Myocardial infarction [Unknown]
  - Gastric ulcer [Unknown]
  - Gastric ulcer surgery [Unknown]
  - Fracture delayed union [Not Recovered/Not Resolved]
